FAERS Safety Report 5017028-3 (Version None)
Quarter: 2006Q2

REPORT INFORMATION
  Report Type: 
  Country: None (occurrence: None)
  Receive Date: 20060414
  Receipt Date: 20060119
  Transmission Date: 20061013
  Serious: Yes (Disabling)
  Sender: FDA-Public Use
  Company Number: 2006010090

PATIENT
  Age: 75 Year
  Sex: Female
  Weight: 53.5244 kg

DRUGS (3)
  1. MACUGEN [Suspect]
     Indication: MACULAR DEGENERATION
     Dosage: 1 IN 6 WK
     Dates: start: 20050601
  2. NABUMETONE [Concomitant]
  3. XANAX [Concomitant]

REACTIONS (3)
  - VISUAL ACUITY REDUCED [None]
  - VISUAL DISTURBANCE [None]
  - VITREOUS FLOATERS [None]
